FAERS Safety Report 7829418-1 (Version None)
Quarter: 2011Q4

REPORT INFORMATION
  Report Type: 
  Country: None (occurrence: None)
  Receive Date: 20111020
  Receipt Date: 20111006
  Transmission Date: 20120403
  Serious: Yes (Other)
  Sender: FDA-Public Use
  Company Number: ES-WATSON-2011-16699

PATIENT
  Age: 71 Year
  Sex: Male

DRUGS (3)
  1. FLUOROURACIL [Suspect]
     Indication: COLON CANCER
     Dosage: UNKNOWN
     Route: 065
  2. LEUCOVORIN CALCIUM [Suspect]
     Indication: COLON CANCER
  3. OXALIPLATIN [Suspect]
     Indication: COLON CANCER

REACTIONS (3)
  - NEUTROPENIA [None]
  - FATIGUE [None]
  - THROMBOCYTOPENIA [None]
